FAERS Safety Report 18621045 (Version 1)
Quarter: 2020Q4

REPORT INFORMATION
  Report Type: Spontaneous
  Country: US (occurrence: US)
  Receive Date: 20201215
  Receipt Date: 20201215
  Transmission Date: 20210114
  Serious: No
  Sender: FDA-Public Use
  Company Number: US-GE HEALTHCARE LIFE SCIENCES-2020CSU003388

PATIENT
  Sex: Female

DRUGS (3)
  1. TECHNETIUM TC 99M [Concomitant]
     Active Substance: TECHNETIUM TC-99M
  2. CERETEC [Suspect]
     Active Substance: TECHNETIUM TC-99M EXAMETAZIME
     Indication: PRODUCT USED FOR UNKNOWN INDICATION
  3. CERETEC [Suspect]
     Active Substance: TECHNETIUM TC-99M EXAMETAZIME
     Indication: SCAN BRAIN
     Dosage: 925 MBQ (25 MCI), ONCE
     Route: 042
     Dates: start: 20200727, end: 20200727

REACTIONS (1)
  - Rash [Unknown]

NARRATIVE: CASE EVENT DATE: 20200727
